FAERS Safety Report 4742064-1 (Version None)
Quarter: 2005Q3

REPORT INFORMATION
  Report Type: 
  Country: None (occurrence: None)
  Receive Date: 20050810
  Receipt Date: 20050729
  Transmission Date: 20060218
  Serious: Yes (Other)
  Sender: FDA-Public Use
  Company Number: 2005108423

PATIENT
  Sex: Female

DRUGS (1)
  1. DRAMAMINE [Suspect]
     Dosage: ORAL
     Route: 048

REACTIONS (1)
  - DELIRIUM [None]
